FAERS Safety Report 4427753-0 (Version None)
Quarter: 2004Q3

REPORT INFORMATION
  Report Type: 
  Country: None (occurrence: None)
  Receive Date: 20040817
  Receipt Date: 20040804
  Transmission Date: 20050211
  Serious: Yes (Hospitalization)
  Sender: FDA-Public Use
  Company Number: IT-GLAXOSMITHKLINE-B0342119A

PATIENT
  Age: 56 Year
  Sex: Female

DRUGS (1)
  1. AMOXICILLIN AND CLAVULANATE POTASSIUM [Suspect]
     Indication: VULVOVAGINITIS
     Dosage: 2G PER DAY
     Route: 048
     Dates: start: 20040727, end: 20040730

REACTIONS (4)
  - DERMATITIS EXFOLIATIVE [None]
  - DYSPHAGIA [None]
  - PRURITUS [None]
  - RASH MORBILLIFORM [None]
